FAERS Safety Report 24311454 (Version 1)
Quarter: 2024Q3

REPORT INFORMATION
  Report Type: Spontaneous
  Country: BE (occurrence: BE)
  Receive Date: 20240912
  Receipt Date: 20240912
  Transmission Date: 20241017
  Serious: Yes (Other)
  Sender: ROCHE
  Company Number: BE-CHEPLA-2024011349

PATIENT
  Age: 55 Year
  Sex: Male

DRUGS (5)
  1. GANCICLOVIR [Suspect]
     Active Substance: GANCICLOVIR
     Indication: Cytomegalovirus infection
     Dosage: BID
     Route: 065
  2. VALGANCICLOVIR [Suspect]
     Active Substance: VALGANCICLOVIR
     Indication: Cytomegalovirus infection
     Dosage: BID
     Route: 065
  3. TOFACITINIB [Concomitant]
     Active Substance: TOFACITINIB
     Indication: Colitis ulcerative
     Dosage: BID
     Route: 065
  4. PIPERACILLIN SODIUM\TAZOBACTAM SODIUM [Concomitant]
     Active Substance: PIPERACILLIN SODIUM\TAZOBACTAM SODIUM
     Indication: Pneumonia
     Route: 065
  5. CLARITHROMYCIN [Concomitant]
     Active Substance: CLARITHROMYCIN
     Indication: Pneumonia
     Route: 065

REACTIONS (2)
  - Cytomegalovirus colitis [Unknown]
  - Off label use [Unknown]
